FAERS Safety Report 4533263-2 (Version None)
Quarter: 2004Q4

REPORT INFORMATION
  Report Type: 
  Country: None (occurrence: None)
  Receive Date: 20041210
  Receipt Date: 20040812
  Transmission Date: 20050328
  Serious: Yes (Hospitalization)
  Sender: FDA-Public Use
  Company Number: A03200402700

PATIENT
  Age: 67 Year
  Sex: Female
  Weight: 78.4723 kg

DRUGS (11)
  1. ELOXATIN [Suspect]
     Indication: COLORECTAL CANCER METASTATIC
     Dosage: 160 MG Q3W - INTRAVENOUS NOS
     Route: 042
     Dates: start: 20040811, end: 20040811
  2. ELOXATIN [Suspect]
     Indication: METASTASES TO LIVER
     Dosage: 160 MG Q3W - INTRAVENOUS NOS
     Route: 042
     Dates: start: 20040811, end: 20040811
  3. FLUOROURACIL [Concomitant]
  4. LEUCOVORIN [Concomitant]
  5. CALCIUM GLUCONATE [Concomitant]
  6. MAGNESIUM [Concomitant]
  7. DEXAMETHASONE [Concomitant]
  8. LEVOTHYROXINE SODIUM [Concomitant]
  9. NATEGLINIDE [Concomitant]
  10. ACETYLSALICYLIC ACID SRT [Concomitant]
  11. PALONOSETRON HYDROCHLORIDE [Concomitant]

REACTIONS (5)
  - DYSPNOEA [None]
  - NAUSEA [None]
  - PYREXIA [None]
  - TREMOR [None]
  - VOMITING [None]
